FAERS Safety Report 8136166-X (Version None)
Quarter: 2012Q1

REPORT INFORMATION
  Report Type: 
  Country: None (occurrence: None)
  Receive Date: 20120210
  Receipt Date: 20120202
  Transmission Date: 20120608
  Serious: Yes (Other)
  Sender: FDA-Public Use
  Company Number: 2011298330

PATIENT
  Age: 78 Year
  Sex: Female

DRUGS (2)
  1. FRAGMIN [Suspect]
     Indication: THROMBOSIS
     Dosage: 10 000 + 7500 UNITS, SUBCUTANEOUS
     Route: 058
  2. FRAGMIN [Suspect]
     Indication: SUPERIOR VENA CAVA SYNDROME
     Dosage: 10 000 + 7500 UNITS, SUBCUTANEOUS
     Route: 058

REACTIONS (3)
  - GASTRIC HAEMORRHAGE [None]
  - ABDOMINAL WALL HAEMATOMA [None]
  - ABDOMINAL DISCOMFORT [None]
